FAERS Safety Report 24237930 (Version 2)
Quarter: 2024Q3

REPORT INFORMATION
  Report Type: Spontaneous
  Country: KR (occurrence: KR)
  Receive Date: 20240822
  Receipt Date: 20240828
  Transmission Date: 20241017
  Serious: Yes (Death)
  Sender: INCYTE
  Company Number: KR-INCYTE CORPORATION-2024IN008761

PATIENT

DRUGS (1)
  1. MONJUVI [Suspect]
     Active Substance: TAFASITAMAB-CXIX
     Indication: Diffuse large B-cell lymphoma
     Dosage: UNKNOWN
     Route: 065
     Dates: start: 20240624

REACTIONS (1)
  - Disease progression [Fatal]
